FAERS Safety Report 11048850 (Version 1)
Quarter: 2015Q2

REPORT INFORMATION
  Report Type: Spontaneous
  Country: CA (occurrence: CA)
  Receive Date: 20150420
  Receipt Date: 20150420
  Transmission Date: 20150821
  Serious: Yes (Hospitalization)
  Sender: FDA-Public Use
  Company Number: CA-ASTRAZENECA-2015SE35985

PATIENT
  Age: 76 Year
  Sex: Female
  Weight: 54.4 kg

DRUGS (11)
  1. SEROQUEL [Suspect]
     Active Substance: QUETIAPINE FUMARATE
     Indication: HYPERTENSION
     Route: 048
  2. SEROQUEL [Suspect]
     Active Substance: QUETIAPINE FUMARATE
     Indication: ANXIETY
     Route: 048
  3. PROGESTERONE. [Concomitant]
     Active Substance: PROGESTERONE
  4. ESTROGENS [Concomitant]
     Active Substance: ESTROGENS
  5. WELLBUTRIN [Concomitant]
     Active Substance: BUPROPION HYDROCHLORIDE
  6. LITHIUM. [Concomitant]
     Active Substance: LITHIUM
  7. NOVO-HYDRAZIDE [Concomitant]
     Active Substance: HYDROCHLOROTHIAZIDE
  8. CYTOMEL [Concomitant]
     Active Substance: LIOTHYRONINE SODIUM
  9. CELEXA [Concomitant]
     Active Substance: CITALOPRAM HYDROBROMIDE
  10. MIRTAZAPINE. [Concomitant]
     Active Substance: MIRTAZAPINE
  11. SEROQUEL [Suspect]
     Active Substance: QUETIAPINE FUMARATE
     Indication: BIPOLAR DISORDER
     Route: 048

REACTIONS (23)
  - Confusional state [Recovered/Resolved]
  - Tonsillar disorder [Recovered/Resolved]
  - Blood urine present [Recovered/Resolved]
  - Chorioretinal atrophy [Recovered/Resolved]
  - Dry mouth [Recovered/Resolved]
  - Tremor [Recovered/Resolved]
  - Amnesia [Recovered/Resolved]
  - Arthralgia [Recovered/Resolved]
  - Cystitis [Recovered/Resolved]
  - Hyperhidrosis [Recovered/Resolved]
  - Seizure [Recovered/Resolved]
  - Vocal cord disorder [Recovered/Resolved]
  - Hypothyroidism [Recovered/Resolved]
  - Hypotonia [Recovered/Resolved]
  - Pain in extremity [Recovered/Resolved]
  - Pain in jaw [Recovered/Resolved]
  - Visual impairment [Recovered/Resolved]
  - Atrioventricular block [Recovered/Resolved]
  - Muscular weakness [Recovered/Resolved]
  - Neck pain [Recovered/Resolved]
  - Renal pain [Recovered/Resolved]
  - Optic nerve disorder [Recovered/Resolved]
  - Skin atrophy [Recovered/Resolved]
